FAERS Safety Report 4454828-2 (Version None)
Quarter: 2004Q3

REPORT INFORMATION
  Report Type: 
  Country: None (occurrence: None)
  Receive Date: 20040921
  Receipt Date: 20040705
  Transmission Date: 20050211
  Serious: Yes (Hospitalization, Other)
  Sender: FDA-Public Use
  Company Number: CA-GLAXOSMITHKLINE-A0517046A

PATIENT
  Age: 44 Year
  Sex: Male
  Weight: 65 kg

DRUGS (5)
  1. ZIAGEN [Suspect]
     Indication: HIV INFECTION
     Dosage: 300MG TWICE PER DAY
     Route: 048
     Dates: start: 20040615, end: 20040629
  2. DAPSONE [Suspect]
     Indication: PNEUMOCYSTIS CARINII INFECTION
     Dosage: 100MG UNKNOWN
     Route: 048
     Dates: start: 20040602, end: 20040629
  3. DAPSONE [Suspect]
     Indication: PROPHYLAXIS
     Dosage: 100MG UNKNOWN
     Route: 048
     Dates: start: 20040602, end: 20040629
  4. LAMIVUDINE [Concomitant]
     Indication: HIV INFECTION
     Dosage: 150MG TWICE PER DAY
     Route: 048
     Dates: start: 20040615, end: 20040629
  5. KALETRA [Concomitant]
     Indication: HIV INFECTION
     Route: 048
     Dates: start: 20040615, end: 20040629

REACTIONS (16)
  - ABDOMINAL PAIN [None]
  - BODY TEMPERATURE INCREASED [None]
  - CHILLS [None]
  - DIARRHOEA [None]
  - GENERAL PHYSICAL HEALTH DETERIORATION [None]
  - HYPERSENSITIVITY [None]
  - LYMPHADENOPATHY [None]
  - MALAISE [None]
  - NAUSEA [None]
  - PHARYNGOLARYNGEAL PAIN [None]
  - PRURITUS [None]
  - RASH ERYTHEMATOUS [None]
  - SKIN DESQUAMATION [None]
  - STEVENS-JOHNSON SYNDROME [None]
  - TACHYCARDIA [None]
  - WHITE BLOOD CELL COUNT INCREASED [None]
